FAERS Safety Report 17137216 (Version 1)
Quarter: 2019Q4

REPORT INFORMATION
  Report Type: Spontaneous
  Country: DE (occurrence: DE)
  Receive Date: 20191210
  Receipt Date: 20191210
  Transmission Date: 20200122
  Serious: No
  Sender: FDA-Public Use
  Company Number: DE-B.BRAUN MEDICAL INC.-2077693

PATIENT
  Age: 63 Year
  Weight: 96 kg

DRUGS (1)
  1. HEPARIN SODIUM IN DEXTROSE [Suspect]
     Active Substance: HEPARIN SODIUM
     Route: 042
     Dates: start: 20191126

REACTIONS (1)
  - Drug ineffective [None]
